FAERS Safety Report 9434645 (Version 1)
Quarter: 2013Q3

REPORT INFORMATION
  Report Type: Spontaneous
  Country: US (occurrence: US)
  Receive Date: 20130801
  Receipt Date: 20130801
  Transmission Date: 20140515
  Serious: Yes (Hospitalization)
  Sender: FDA-Public Use
  Company Number: US-JNJFOC-20130712158

PATIENT
  Age: 65 Year
  Sex: Female
  Weight: 54.43 kg

DRUGS (6)
  1. INVEGA SUSTENNA [Suspect]
     Indication: SCHIZOAFFECTIVE DISORDER
     Route: 030
     Dates: start: 20130716
  2. INVEGA [Suspect]
     Indication: SCHIZOAFFECTIVE DISORDER
     Route: 048
     Dates: start: 201306, end: 20130716
  3. PLAVIX [Concomitant]
     Indication: HYPERLIPIDAEMIA
     Route: 065
  4. NORVASC [Concomitant]
     Indication: HYPERTENSION
     Route: 065
  5. LOPRESSOR [Concomitant]
     Indication: HYPERTENSION
     Route: 065
  6. ADVICOR [Concomitant]
     Indication: HYPERLIPIDAEMIA
     Route: 065

REACTIONS (2)
  - Tachycardia [Recovered/Resolved]
  - Incorrect dose administered [Unknown]
